FAERS Safety Report 7738364-3 (Version None)
Quarter: 2011Q3

REPORT INFORMATION
  Report Type: 
  Country: None (occurrence: None)
  Receive Date: 20110908
  Receipt Date: 20110906
  Transmission Date: 20111222
  Serious: Yes (Congenital Anomaly, Other)
  Sender: FDA-Public Use
  Company Number: US-PFIZER INC-2011151131

PATIENT
  Sex: Male
  Weight: 4 kg

DRUGS (9)
  1. PREVACID [Concomitant]
     Indication: GASTROOESOPHAGEAL REFLUX DISEASE
     Dosage: 30 MG, DAILY
  2. ZOMIG [Concomitant]
     Dosage: 2.5 MG, AS NEEDED
  3. SERTRALINE HYDROCHLORIDE [Suspect]
     Dosage: 50 MG, 1X/DAY
     Route: 064
     Dates: start: 20070110
  4. TOPAMAX [Concomitant]
     Dosage: UNK
  5. ZOLOFT [Suspect]
     Dosage: 25 MG, UNK
     Route: 064
     Dates: start: 20031105
  6. ELAVIL [Concomitant]
     Dosage: 10 MG, 1X/DAY (AT BEDTIME)
  7. HEPARIN [Concomitant]
     Indication: DEEP VEIN THROMBOSIS
     Dosage: 5000 UNITS, 2X/DAY
  8. VENTOLIN HFA [Concomitant]
     Dosage: UNK
  9. ADVIL LIQUI-GELS [Concomitant]
     Dosage: 800 MG, AS NEEDED

REACTIONS (25)
  - PULMONARY ARTERY ATRESIA [None]
  - HEART VALVE INCOMPETENCE [None]
  - INFLUENZA [None]
  - CARDIOMEGALY [None]
  - SPEECH DISORDER DEVELOPMENTAL [None]
  - ATRIAL TACHYCARDIA [None]
  - PROCEDURAL COMPLICATION [None]
  - SINUSITIS [None]
  - TRANSPOSITION OF THE GREAT VESSELS [None]
  - ANOMALOUS PULMONARY VENOUS CONNECTION [None]
  - PNEUMONIA [None]
  - ARRHYTHMIA [None]
  - ABDOMINAL DISTENSION [None]
  - ASTHMA [None]
  - MATERNAL EXPOSURE DURING PREGNANCY [None]
  - CONJUNCTIVITIS [None]
  - HETEROTAXIA [None]
  - CARDIAC FAILURE CONGESTIVE [None]
  - GASTRITIS [None]
  - SUPRAVENTRICULAR TACHYCARDIA [None]
  - AORTIC VALVE INCOMPETENCE [None]
  - OTITIS MEDIA [None]
  - ATRIOVENTRICULAR SEPTAL DEFECT [None]
  - HEART DISEASE CONGENITAL [None]
  - COUGH [None]
